FAERS Safety Report 5451902-9 (Version None)
Quarter: 2007Q3

REPORT INFORMATION
  Report Type: 
  Country: None (occurrence: None)
  Receive Date: 20070912
  Receipt Date: 20070829
  Transmission Date: 20080115
  Serious: Yes (Other)
  Sender: FDA-Public Use
  Company Number: 2007JP003718

PATIENT
  Age: 57 Year
  Sex: Male

DRUGS (12)
  1. PROGRAF [Suspect]
     Indication: MYASTHENIA GRAVIS
     Dosage: 3 MG, UID/QD, ORAL
     Route: 048
     Dates: start: 20050930, end: 20070803
  2. FAMOTIDINE [Suspect]
     Indication: REFLUX OESOPHAGITIS
     Dosage: 20 MG, BID, ORAL
     Route: 048
     Dates: start: 20010823, end: 20070803
  3. LIPITOR [Suspect]
     Indication: HYPERCHOLESTEROLAEMIA
     Dosage: 10 MG, UID/QD, ORAL
     Route: 048
     Dates: start: 20060915, end: 20070803
  4. ISCOTIN (ISONIAZID) TABLET [Suspect]
     Dosage: 400 MG, UID/QD, ORAL
     Route: 048
     Dates: start: 20060915, end: 20070803
  5. PURSENNID (SENNOSIDE A+B CALCIUM) TABLET [Concomitant]
  6. MESTINON [Concomitant]
  7. ULCERLMIN (SUCRALFATE) FINE GRANULE [Concomitant]
  8. METHYCOBAL (MECOBALAMIN) TABLET [Concomitant]
  9. SLOW-K [Concomitant]
  10. ALFAROL (ALFACALCIDOL) CAPSULE [Concomitant]
  11. DIOVAN [Concomitant]
  12. PREDNISONE [Concomitant]

REACTIONS (8)
  - ALANINE AMINOTRANSFERASE INCREASED [None]
  - ASPARTATE AMINOTRANSFERASE INCREASED [None]
  - BLOOD ALKALINE PHOSPHATASE INCREASED [None]
  - BLOOD LACTATE DEHYDROGENASE INCREASED [None]
  - GAMMA-GLUTAMYLTRANSFERASE INCREASED [None]
  - HEPATIC FUNCTION ABNORMAL [None]
  - MALAISE [None]
  - WHITE BLOOD CELL COUNT INCREASED [None]
